FAERS Safety Report 4442994-4 (Version None)
Quarter: 2004Q3

REPORT INFORMATION
  Report Type: 
  Country: None (occurrence: None)
  Receive Date: 20040907
  Receipt Date: 20040823
  Transmission Date: 20050211
  Serious: Yes (Other)
  Sender: FDA-Public Use
  Company Number: 002605

PATIENT
  Age: 67 Year
  Sex: Female

DRUGS (3)
  1. MEDROXYPROGESTERONE ACETATE [Suspect]
     Dates: start: 20000101, end: 20000101
  2. MEDROXYPROGESTERONE ACETATE [Suspect]
     Dates: start: 19980501, end: 20000201
  3. PREMARIN [Suspect]
     Dates: start: 20000101, end: 20000101

REACTIONS (1)
  - OVARIAN CANCER [None]
